FAERS Safety Report 4929363-5 (Version None)
Quarter: 2006Q1

REPORT INFORMATION
  Report Type: 
  Country: None (occurrence: None)
  Receive Date: 20060224
  Receipt Date: 20060213
  Transmission Date: 20060701
  Serious: Yes (Other)
  Sender: FDA-Public Use
  Company Number: HQWYE811715FEB06

PATIENT
  Age: 14 Year
  Sex: Male

DRUGS (1)
  1. TAZOCIN (PIPERACILLIN/TAZOBACTAM, INJECTION) [Suspect]
     Indication: LUNG INFECTION
     Dosage: ^ONLY HALF THE DOSE WAS GIVEN^, INTRAVENOUS
     Route: 042
     Dates: start: 20060210, end: 20060210

REACTIONS (4)
  - CHEST PAIN [None]
  - DYSPNOEA [None]
  - FLUSHING [None]
  - PARAESTHESIA [None]
